FAERS Safety Report 11718319 (Version 1)
Quarter: 2015Q4

REPORT INFORMATION
  Report Type: Spontaneous
  Country: US (occurrence: None)
  Receive Date: 20151109
  Receipt Date: 20151109
  Transmission Date: 20160304
  Serious: Yes (Life-Threatening, Hospitalization, Disabling)
  Sender: FDA-Public Use
  Company Number: None

PATIENT
  Age: 82 Year
  Sex: Female
  Weight: 98.2 kg

DRUGS (1)
  1. AMOXICILLIN/CLAVULANIC ACID [Suspect]
     Active Substance: AMOXICILLIN\CLAVULANIC ACID
     Indication: PNEUMONIA
     Route: 048
     Dates: start: 20151018, end: 20151026

REACTIONS (4)
  - Pulmonary haemorrhage [None]
  - Thrombocytopenia [None]
  - Hypotension [None]
  - Acute respiratory distress syndrome [None]

NARRATIVE: CASE EVENT DATE: 20151026
